FAERS Safety Report 4865173-5 (Version None)
Quarter: 2005Q4

REPORT INFORMATION
  Report Type: 
  Country: None (occurrence: None)
  Receive Date: 20051223
  Receipt Date: 20051019
  Transmission Date: 20060501
  Serious: Yes (Other)
  Sender: FDA-Public Use
  Company Number: US-GLAXOSMITHKLINE-A0578768A

PATIENT
  Sex: Female

DRUGS (2)
  1. NAVELBINE [Suspect]
     Indication: BREAST CANCER METASTATIC
     Dosage: 30MGM2 UNKNOWN
     Route: 042
  2. UNKNOWN [Concomitant]

REACTIONS (9)
  - CATHETER RELATED COMPLICATION [None]
  - CRANIAL NERVE DISORDER [None]
  - DEVICE FAILURE [None]
  - ERYTHEMA [None]
  - EXTRAVASATION [None]
  - HYPOAESTHESIA [None]
  - PAIN OF SKIN [None]
  - PARAESTHESIA ORAL [None]
  - SKIN IRRITATION [None]
